FAERS Safety Report 9117453 (Version 6)
Quarter: 2014Q1

REPORT INFORMATION
  Report Type: Spontaneous
  Country: US (occurrence: US)
  Receive Date: 20130225
  Receipt Date: 20140108
  Transmission Date: 20141002
  Serious: Yes (Hospitalization)
  Sender: FDA-Public Use
  Company Number: US-BIOGENIDEC-2013BI017550

PATIENT
  Age: 44 Year
  Sex: Male

DRUGS (10)
  1. TYSABRI [Suspect]
     Indication: MULTIPLE SCLEROSIS
     Route: 042
     Dates: start: 20081230, end: 20130124
  2. AVONEX [Concomitant]
     Indication: MULTIPLE SCLEROSIS
     Route: 030
     Dates: start: 20020921
  3. AMPYRA [Concomitant]
     Route: 048
  4. CALTRATE [Concomitant]
     Route: 048
  5. CINNAMON [Concomitant]
     Route: 048
  6. GARLIC [Concomitant]
     Route: 048
  7. LIPITOR [Concomitant]
     Route: 048
  8. UROXATRAL [Concomitant]
     Route: 048
  9. VITAMIN B COMPLEX [Concomitant]
  10. VITAMIN D [Concomitant]
     Route: 048

REACTIONS (6)
  - Neutropenia [Not Recovered/Not Resolved]
  - Drug specific antibody present [Unknown]
  - Urinary tract infection [Recovered/Resolved]
  - Influenza like illness [Recovered/Resolved]
  - Urosepsis [Recovered/Resolved]
  - Blood potassium decreased [Not Recovered/Not Resolved]
